FAERS Safety Report 26204218 (Version 1)
Quarter: 2025Q4

REPORT INFORMATION
  Report Type: Spontaneous
  Country: US (occurrence: US)
  Receive Date: 20251226
  Receipt Date: 20251226
  Transmission Date: 20260118
  Serious: Yes (Other)
  Sender: ALEXION PHARMACEUTICALS
  Company Number: US-AstraZeneca-CH-01017351A

PATIENT
  Sex: Female

DRUGS (2)
  1. FASLODEX [Suspect]
     Active Substance: FULVESTRANT
     Indication: Hormone receptor positive HER2 negative breast cancer
     Dosage: UNK UNK, QMONTH
     Route: 065
  2. FASLODEX [Suspect]
     Active Substance: FULVESTRANT

REACTIONS (9)
  - Neuropathy peripheral [Not Recovered/Not Resolved]
  - Breast cancer recurrent [Unknown]
  - Injection site pain [Not Recovered/Not Resolved]
  - Fatigue [Recovered/Resolved]
  - Depression [Unknown]
  - Anxiety [Unknown]
  - Pain in extremity [Recovered/Resolved]
  - Sciatica [Recovered/Resolved]
  - Muscle injury [Recovered/Resolved]
